FAERS Safety Report 16653822 (Version 2)
Quarter: 2019Q3

REPORT INFORMATION
  Report Type: Spontaneous
  Country: US (occurrence: US)
  Receive Date: 20190731
  Receipt Date: 20190814
  Transmission Date: 20191004
  Serious: Yes (Death)
  Sender: FDA-Public Use
  Company Number: US-PFIZER INC-2019298706

PATIENT
  Age: 78 Year
  Sex: Male
  Weight: 65.76 kg

DRUGS (2)
  1. TAFAMIDIS MEGLUMINE [Suspect]
     Active Substance: TAFAMIDIS MEGLUMINE
     Dosage: UNK
     Dates: start: 20190318
  2. TAFAMIDIS MEGLUMINE [Suspect]
     Active Substance: TAFAMIDIS MEGLUMINE
     Indication: AMYLOIDOSIS
     Dosage: 61 MG, UNK
     Dates: start: 201503, end: 20190701

REACTIONS (3)
  - Cardiac arrest [Fatal]
  - Cardiac failure congestive [Fatal]
  - Amyloidosis [Fatal]
